FAERS Safety Report 8582118 (Version 2)
Quarter: 2013Q3

REPORT INFORMATION
  Report Type: Report from Study
  Country: MX (occurrence: MX)
  Receive Date: 20120528
  Receipt Date: 20130717
  Transmission Date: 20140515
  Serious: Yes (Other)
  Sender: FDA-Public Use
  Company Number: PHHY2012MX045184

PATIENT
  Age: 81 Year
  Sex: Female

DRUGS (3)
  1. EXFORGE [Suspect]
     Indication: HYPERTENSION
     Dosage: 2 TABLETS (160/5MG) A DAY
     Route: 048
     Dates: start: 201005
  2. DIAZEPAM [Concomitant]
     Indication: DEPRESSION
     Dosage: UNK UKN, QD
  3. LOSARTAN [Concomitant]
     Indication: DEPRESSION
     Dosage: UNK

REACTIONS (9)
  - Lower limb fracture [Unknown]
  - Hypertension [Recovered/Resolved]
  - Spinal pain [Unknown]
  - Dry mouth [Unknown]
  - Joint swelling [Unknown]
  - Local swelling [Unknown]
  - Pain in extremity [Unknown]
  - Arthralgia [Unknown]
  - Blood pressure inadequately controlled [Recovered/Resolved with Sequelae]
